FAERS Safety Report 15065385 (Version 1)
Quarter: 2018Q2

REPORT INFORMATION
  Report Type: Spontaneous
  Country: GB (occurrence: GB)
  Receive Date: 20180626
  Receipt Date: 20180626
  Transmission Date: 20180711
  Serious: Yes (Hospitalization)
  Sender: FDA-Public Use
  Company Number: GB-TEVA-2018-GB-913176

PATIENT
  Age: 85 Year
  Sex: Female

DRUGS (6)
  1. ACICLOVIR [Suspect]
     Active Substance: ACYCLOVIR
     Indication: VASCULITIS
     Route: 042
  2. ALVERINE [Concomitant]
     Active Substance: ALVERINE
     Indication: IRRITABLE BOWEL SYNDROME
     Dosage: 1-2 CAPSULES UP TO THREE TIMES A DAY IF REQUIRED.
     Route: 048
     Dates: start: 20170406
  3. ACICLOVIR [Suspect]
     Active Substance: ACYCLOVIR
     Indication: HERPES ZOSTER
     Dosage: 4000 MILLIGRAM DAILY;
     Route: 048
     Dates: start: 20180427, end: 20180501
  4. LAXIDO [Concomitant]
     Active Substance: POLYETHYLENE GLYCOL 3350\POTASSIUM CHLORIDE\SODIUM BICARBONATE\SODIUM CHLORIDE
     Indication: CONSTIPATION
     Route: 065
     Dates: start: 20150326
  5. PARACETAMOL [Concomitant]
     Active Substance: ACETAMINOPHEN
     Indication: PAIN
     Route: 048
     Dates: start: 20171026
  6. AMITRIPTYLINE [Concomitant]
     Active Substance: AMITRIPTYLINE
     Indication: HERPES ZOSTER
     Dosage: 10 MILLIGRAM DAILY;
     Route: 048
     Dates: start: 20180427, end: 20180501

REACTIONS (7)
  - Visual impairment [Unknown]
  - Pruritus [Unknown]
  - Lethargy [Unknown]
  - Skin lesion [Unknown]
  - Erythema [Recovering/Resolving]
  - Urticaria [Recovering/Resolving]
  - Pallor [Recovering/Resolving]

NARRATIVE: CASE EVENT DATE: 20180501
